FAERS Safety Report 10232407 (Version 1)
Quarter: 2014Q2

REPORT INFORMATION
  Report Type: Report from Study
  Country: JP (occurrence: JP)
  Receive Date: 20140612
  Receipt Date: 20140612
  Transmission Date: 20141212
  Serious: Yes (Death, Other)
  Sender: FDA-Public Use
  Company Number: JP-ROCHE-1412478

PATIENT
  Sex: 0

DRUGS (5)
  1. CAPECITABINE [Suspect]
     Indication: COLORECTAL CANCER
     Route: 065
  2. BEVACIZUMAB [Suspect]
     Indication: COLORECTAL CANCER
     Route: 065
  3. FLUOROURACIL [Suspect]
     Indication: COLORECTAL CANCER
     Route: 065
  4. LEUCOVORIN [Suspect]
     Indication: COLORECTAL CANCER
     Route: 065
  5. OXALIPLATIN [Suspect]
     Indication: COLORECTAL CANCER
     Route: 065

REACTIONS (17)
  - Interstitial lung disease [Fatal]
  - Leukopenia [Unknown]
  - Neutropenia [Unknown]
  - Injection site reaction [Unknown]
  - Asthenia [Unknown]
  - Diarrhoea [Unknown]
  - Decreased appetite [Unknown]
  - Neurotoxicity [Unknown]
  - Vomiting [Unknown]
  - Nausea [Unknown]
  - Fatigue [Unknown]
  - Mucosal inflammation [Unknown]
  - Hypersensitivity [Unknown]
  - Palmar-plantar erythrodysaesthesia syndrome [Unknown]
  - Alanine aminotransferase abnormal [Unknown]
  - Aspartate aminotransferase abnormal [Unknown]
  - Blood alkaline phosphatase abnormal [Unknown]
